FAERS Safety Report 9695079 (Version 2)
Quarter: 2013Q4

REPORT INFORMATION
  Report Type: Spontaneous
  Country: US (occurrence: US)
  Receive Date: 20131119
  Receipt Date: 20131129
  Transmission Date: 20140711
  Serious: Yes (Other)
  Sender: FDA-Public Use
  Company Number: PHEH2013US023776

PATIENT
  Sex: Female

DRUGS (3)
  1. AFINITOR [Suspect]
     Dosage: 10 MG, QD
     Dates: start: 20131019
  2. AFINITOR [Suspect]
  3. EXEMESTANE [Concomitant]

REACTIONS (4)
  - Chest discomfort [Unknown]
  - Dysgeusia [Unknown]
  - Stomatitis [Recovered/Resolved]
  - Rash [Recovering/Resolving]
